FAERS Safety Report 25526240 (Version 2)
Quarter: 2025Q3

REPORT INFORMATION
  Report Type: Spontaneous
  Country: US (occurrence: US)
  Receive Date: 20250707
  Receipt Date: 20250716
  Transmission Date: 20251021
  Serious: Yes (Other)
  Sender: ROCHE
  Company Number: US-ROCHE-10000327781

PATIENT
  Sex: Female

DRUGS (3)
  1. XOLAIR [Suspect]
     Active Substance: OMALIZUMAB
     Indication: Asthma
     Route: 058
     Dates: start: 202409
  2. XOLAIR [Suspect]
     Active Substance: OMALIZUMAB
     Indication: Migraine
     Dosage: HER LAST XOLAIR INJECTION WAS ON 19-MAR-2025.
     Route: 058
     Dates: start: 202410
  3. XOLAIR [Suspect]
     Active Substance: OMALIZUMAB
     Dosage: HER LAST XOLAIR INJECTION WAS ON 19-MAR-2025.
     Route: 058
     Dates: start: 202410

REACTIONS (1)
  - Anaphylactic reaction [Unknown]
